FAERS Safety Report 6264386-8 (Version None)
Quarter: 2009Q3

REPORT INFORMATION
  Report Type: 
  Country: None (occurrence: None)
  Receive Date: 20090710
  Receipt Date: 20090701
  Transmission Date: 20100115
  Serious: Yes (Other)
  Sender: FDA-Public Use
  Company Number: B0581466A

PATIENT
  Age: 38 Year
  Sex: Female

DRUGS (4)
  1. MALARONE [Suspect]
     Indication: MALARIA PROPHYLAXIS
  2. REVAXIS [Suspect]
     Dates: start: 20080624, end: 20080624
  3. STAMARIL [Suspect]
     Dates: start: 20080623, end: 20080623
  4. HEP A AND TYPHOID VACCINE [Suspect]
     Dates: start: 20080624, end: 20080624

REACTIONS (1)
  - ABORTION SPONTANEOUS [None]
